FAERS Safety Report 6967867-4 (Version None)
Quarter: 2010Q3

REPORT INFORMATION
  Report Type: 
  Country: None (occurrence: None)
  Receive Date: 20100907
  Receipt Date: 20100409
  Transmission Date: 20110219
  Serious: No
  Sender: FDA-Public Use
  Company Number: A0854520A

PATIENT

DRUGS (12)
  1. REQUIP [Suspect]
     Indication: RESTLESS LEGS SYNDROME
     Dosage: 1MG VARIABLE DOSE
     Route: 048
     Dates: start: 20060101
  2. KLONOPIN [Concomitant]
  3. DOXEPIN HCL [Concomitant]
  4. CRESTOR [Concomitant]
  5. RESTORIL [Concomitant]
  6. MIRAPEX [Concomitant]
  7. PRILOSEC [Concomitant]
  8. POTASSIUM [Concomitant]
  9. COUMADIN [Concomitant]
  10. GLYBURIDE [Concomitant]
  11. SINGULAIR [Concomitant]
  12. SYNTHROID [Concomitant]

REACTIONS (2)
  - EXPIRED DRUG ADMINISTERED [None]
  - THERAPEUTIC RESPONSE DELAYED [None]
